FAERS Safety Report 24279637 (Version 3)
Quarter: 2024Q3

REPORT INFORMATION
  Report Type: Spontaneous
  Country: US (occurrence: US)
  Receive Date: 20240904
  Receipt Date: 20240906
  Transmission Date: 20241017
  Serious: Yes (Other)
  Sender: NOVARTIS
  Company Number: US-002147023-NVSC2024US176163

PATIENT
  Age: 52 Year

DRUGS (6)
  1. COSENTYX [Suspect]
     Active Substance: SECUKINUMAB
     Indication: Product used for unknown indication
     Dosage: UNK
     Route: 065
     Dates: start: 202206
  2. METHOTREXATE [Suspect]
     Active Substance: METHOTREXATE
     Indication: Product used for unknown indication
     Dosage: UNK
     Route: 065
     Dates: start: 202206
  3. KETAMINE [Concomitant]
     Active Substance: KETAMINE
     Indication: Product used for unknown indication
     Dosage: UNK
     Route: 065
  4. ESKETAMINE [Concomitant]
     Active Substance: ESKETAMINE
     Indication: Depression
     Dosage: UNK
     Route: 065
  5. ESKETAMINE [Concomitant]
     Active Substance: ESKETAMINE
     Indication: Post-traumatic stress disorder
  6. UNSPECIFIED INGREDIENT [Concomitant]
     Active Substance: UNSPECIFIED INGREDIENT
     Indication: Product used for unknown indication
     Dosage: UNK, QW
     Route: 065

REACTIONS (6)
  - Suicidal ideation [Unknown]
  - Emotional distress [Unknown]
  - Feeling abnormal [Unknown]
  - Clumsiness [Unknown]
  - Thinking abnormal [Unknown]
  - Imperception [Unknown]
